FAERS Safety Report 23681126 (Version 1)
Quarter: 2024Q1

REPORT INFORMATION
  Report Type: Spontaneous
  Country: MX (occurrence: MX)
  Receive Date: 20240328
  Receipt Date: 20240328
  Transmission Date: 20240410
  Serious: Yes (Hospitalization, Other)
  Sender: FDA-Public Use
  Company Number: MX-SA-2024SA093161

PATIENT
  Age: 19 Year
  Sex: Female

DRUGS (3)
  1. LEFLUNOMIDE [Suspect]
     Active Substance: LEFLUNOMIDE
     Indication: Rheumatoid arthritis
     Dosage: 20 MG
  2. CHLOROQUINE [Concomitant]
     Active Substance: CHLOROQUINE
     Indication: Rheumatoid arthritis
     Dosage: 150 MG
  3. LEVOTHYROXINE [Concomitant]
     Active Substance: LEVOTHYROXINE\LEVOTHYROXINE SODIUM
     Indication: Hypothyroidism
     Dosage: 100 UG

REACTIONS (12)
  - Drug-induced liver injury [Recovering/Resolving]
  - Hepatotoxicity [Recovering/Resolving]
  - Hepatitis [Recovering/Resolving]
  - Hepatic fibrosis [Recovering/Resolving]
  - Cholestasis [Recovering/Resolving]
  - Hepatic steatosis [Recovering/Resolving]
  - Hepatomegaly [Recovering/Resolving]
  - Cholecystitis chronic [Recovering/Resolving]
  - Abdominal pain [Recovering/Resolving]
  - Vomiting [Recovering/Resolving]
  - Nausea [Recovering/Resolving]
  - Jaundice [Recovering/Resolving]

NARRATIVE: CASE EVENT DATE: 20221001
